FAERS Safety Report 7868017-2 (Version None)
Quarter: 2011Q4

REPORT INFORMATION
  Report Type: 
  Country: None (occurrence: None)
  Receive Date: 20111028
  Receipt Date: 20111028
  Transmission Date: 20120403
  Serious: Yes (Other)
  Sender: FDA-Public Use
  Company Number: SG-BAYER-2011-104787

PATIENT
  Age: 74 Year
  Sex: Male

DRUGS (1)
  1. GLUCOBAY [Suspect]

REACTIONS (1)
  - HEAD DISCOMFORT [None]
